FAERS Safety Report 23357687 (Version 1)
Quarter: 2024Q1

REPORT INFORMATION
  Report Type: Report from Study
  Country: US (occurrence: US)
  Receive Date: 20240102
  Receipt Date: 20240102
  Transmission Date: 20240410
  Serious: Yes (Other)
  Sender: FDA-Public Use
  Company Number: US-REATA PHARMACEUTICALS INC.-2023USRTAOMA000720

PATIENT

DRUGS (1)
  1. SKYCLARYS [Suspect]
     Active Substance: OMAVELOXOLONE
     Indication: Friedreich^s ataxia
     Dosage: 150 MILLIGRAM, BY MOUTH DAILY
     Route: 048
     Dates: start: 20231004

REACTIONS (1)
  - Arrhythmia [Unknown]

NARRATIVE: CASE EVENT DATE: 20230101
